FAERS Safety Report 8638822 (Version 2)
Quarter: 2014Q2

REPORT INFORMATION
  Report Type: Spontaneous
  Country: US (occurrence: US)
  Receive Date: 20120627
  Receipt Date: 20140421
  Transmission Date: 20141212
  Serious: Yes (Death, Other)
  Sender: FDA-Public Use
  Company Number: US-JNJFOC-20120611523

PATIENT
  Sex: 0

DRUGS (9)
  1. DOXORUBICIN [Suspect]
     Indication: PLASMA CELL MYELOMA
     Dosage: ON DAY 8, 200MG/M2 (RANGE 40-320)
     Route: 042
  2. DEXAMETHASONE [Suspect]
     Indication: PLASMA CELL MYELOMA
     Dosage: ON DAYS 8-11
     Route: 048
  3. LENALIDOMIDE [Suspect]
     Indication: PLASMA CELL MYELOMA
     Dosage: MAINTAINANCE PHASE; DAYS 1-21
     Route: 065
  4. LENALIDOMIDE [Suspect]
     Indication: PLASMA CELL MYELOMA
     Dosage: INCREASING DOSE LEVELS (5MG, 10MG, 15MG MTD 10MG), DAYS 1-21
     Route: 065
  5. VINCRISTINE [Suspect]
     Indication: PLASMA CELL MYELOMA
     Dosage: FOR 4-6 CYCLES (2 CYCLES BEYOND BEST RESPONSE) DAY 8
     Route: 042
  6. PREDNISONE [Suspect]
     Indication: PLASMA CELL MYELOMA
     Dosage: MAINTAINANCE PHASE
     Route: 065
  7. ASPIRIN [Concomitant]
     Indication: THROMBOSIS PROPHYLAXIS
     Route: 065
  8. AMOXICILLIN [Concomitant]
     Indication: INFECTION PROPHYLAXIS
     Route: 065
  9. ACYCLOVIR [Concomitant]
     Indication: INFECTION PROPHYLAXIS
     Route: 065

REACTIONS (31)
  - Pneumonia [Fatal]
  - Sepsis [Fatal]
  - Pancreatitis [Fatal]
  - Upper respiratory tract infection [Fatal]
  - Leukopenia [Unknown]
  - Diarrhoea [Unknown]
  - Mucosal inflammation [Unknown]
  - Oesophagitis [Unknown]
  - Nausea [Unknown]
  - Vomiting [Unknown]
  - Anaemia [Unknown]
  - Neutropenia [Unknown]
  - Febrile neutropenia [Unknown]
  - Pancytopenia [Unknown]
  - Thrombocytopenia [Unknown]
  - Neuropathy peripheral [Unknown]
  - Convulsion [Unknown]
  - Muscle spasms [Unknown]
  - Blood creatinine abnormal [Unknown]
  - Renal failure [Unknown]
  - Dyspnoea [Unknown]
  - Acute respiratory failure [Unknown]
  - Deep vein thrombosis [Unknown]
  - Pulmonary embolism [Unknown]
  - Atrial fibrillation [Unknown]
  - Failure to thrive [Unknown]
  - Fatigue [Unknown]
  - Gastrointestinal haemorrhage [Unknown]
  - Hypokalaemia [Unknown]
  - Rash [Unknown]
  - Tumour lysis syndrome [Unknown]
